FAERS Safety Report 7822087-6 (Version None)
Quarter: 2011Q4

REPORT INFORMATION
  Report Type: 
  Country: None (occurrence: None)
  Receive Date: 20111018
  Receipt Date: 20111013
  Transmission Date: 20120403
  Serious: Yes (Hospitalization)
  Sender: FDA-Public Use
  Company Number: PHHY2011FR90746

PATIENT
  Sex: Male

DRUGS (8)
  1. PRAVASTATIN [Concomitant]
     Dosage: 40 MG, UNK
  2. POTASSIUM CHLORIDE [Concomitant]
  3. VALSARTAN  AND HYDROCHLOROTHIAZIDE [Concomitant]
     Dosage: 160/25 MG
  4. MONO-TILDIEM LP [Concomitant]
     Dosage: 500 MG
  5. ALLOPURINOL [Concomitant]
     Dosage: 200 MG, UNK
  6. DESLORATADINE [Concomitant]
  7. VOLTAREN [Suspect]
     Indication: ARTHRALGIA
     Dosage: 6 DF, DAILY
     Route: 048
     Dates: start: 20110905, end: 20110909
  8. ASPIRIN [Concomitant]
     Dosage: 75 MG

REACTIONS (7)
  - ANAEMIA [None]
  - GASTROINTESTINAL HAEMORRHAGE [None]
  - COLITIS [None]
  - MALAISE [None]
  - LOSS OF CONSCIOUSNESS [None]
  - HAEMATOCRIT DECREASED [None]
  - RECTAL HAEMORRHAGE [None]
